FAERS Safety Report 25517499 (Version 1)
Quarter: 2025Q3

REPORT INFORMATION
  Report Type: Other
  Country: US (occurrence: US)
  Receive Date: 20250704
  Receipt Date: 20250704
  Transmission Date: 20251021
  Serious: Yes (Death, Hospitalization)
  Sender: ANI
  Company Number: US-ANIPHARMA-023397

PATIENT
  Age: 63 Year
  Sex: Male

DRUGS (7)
  1. MEXILETINE [Suspect]
     Active Substance: MEXILETINE
     Indication: Ventricular tachycardia
  2. NOREPINEPHRINE [Concomitant]
     Active Substance: NOREPINEPHRINE
     Indication: Cardiogenic shock
  3. AMIODARONE [Concomitant]
     Active Substance: AMIODARONE
     Indication: Ventricular tachycardia
  4. DOBUTAMINE [Concomitant]
     Active Substance: DOBUTAMINE HYDROCHLORIDE
     Indication: Cardiogenic shock
  5. EPINEPHRINE [Concomitant]
     Active Substance: EPINEPHRINE
     Indication: Cardiogenic shock
  6. AMIODARONE [Concomitant]
     Active Substance: AMIODARONE
     Indication: Atrial fibrillation
  7. MEXILETINE [Suspect]
     Active Substance: MEXILETINE
     Indication: Atrial fibrillation

REACTIONS (1)
  - Drug ineffective [Fatal]
